FAERS Safety Report 4685025-3 (Version None)
Quarter: 2005Q2

REPORT INFORMATION
  Report Type: 
  Country: None (occurrence: None)
  Receive Date: 20050531
  Receipt Date: 20050224
  Transmission Date: 20051028
  Serious: No
  Sender: FDA-Public Use
  Company Number: WAES 0502USA03363

PATIENT
  Age: 60 Year
  Sex: Male

DRUGS (2)
  1. ZETIA [Suspect]
     Dosage: 10 MG/UNK/PO
     Route: 048
     Dates: start: 20041201
  2. MEXITIL [Concomitant]

REACTIONS (1)
  - CARDIAC DISORDER [None]
